FAERS Safety Report 10553473 (Version 2)
Quarter: 2014Q4

REPORT INFORMATION
  Report Type: Spontaneous
  Country: FR (occurrence: None)
  Receive Date: 20141028
  Receipt Date: 20141031
  Transmission Date: 20150529
  Serious: Yes (Other)
  Sender: FDA-Public Use
  Company Number: 2014-20582

PATIENT

DRUGS (2)
  1. VEGF TRAP-EYE [Suspect]
     Active Substance: AFLIBERCEPT
     Indication: NEOVASCULAR AGE-RELATED MACULAR DEGENERATION
     Dates: start: 20140606
  2. EFFEXOR (VENLAFAXINE HYDROCHLORIDE) [Concomitant]

REACTIONS (1)
  - Confusional state [None]

NARRATIVE: CASE EVENT DATE: 20140723
